FAERS Safety Report 19495630 (Version 3)
Quarter: 2021Q3

REPORT INFORMATION
  Report Type: Report from Study
  Country: DE (occurrence: DE)
  Receive Date: 20210706
  Receipt Date: 20210817
  Transmission Date: 20211014
  Serious: Yes (Hospitalization)
  Sender: FDA-Public Use
  Company Number: DE-KYOWAKIRIN-2021BKK009007

PATIENT

DRUGS (3)
  1. NUROFEN [IBUPROFEN] [Concomitant]
     Active Substance: IBUPROFEN
     Indication: PRODUCT USED FOR UNKNOWN INDICATION
     Dosage: UNK, IF REQUIRED
     Route: 065
  2. BUROSUMAB [Suspect]
     Active Substance: BUROSUMAB
     Indication: HEREDITARY HYPOPHOSPHATAEMIC RICKETS
     Dosage: 20 MG
     Route: 058
     Dates: start: 20210525
  3. BUROSUMAB [Suspect]
     Active Substance: BUROSUMAB
     Dosage: 10 MG
     Route: 058
     Dates: start: 20180821

REACTIONS (1)
  - Knee deformity [Recovered/Resolved]

NARRATIVE: CASE EVENT DATE: 20210525
